FAERS Safety Report 8213420-4 (Version None)
Quarter: 2012Q1

REPORT INFORMATION
  Report Type: 
  Country: None (occurrence: None)
  Receive Date: 20120315
  Receipt Date: 20120308
  Transmission Date: 20120608
  Serious: Yes (Death, Other)
  Sender: FDA-Public Use
  Company Number: GB-ROCHE-1046981

PATIENT
  Sex: Female

DRUGS (1)
  1. LUCENTIS [Suspect]
     Indication: PRODUCT USED FOR UNKNOWN INDICATION
     Route: 050

REACTIONS (6)
  - JAUNDICE [None]
  - DEATH [None]
  - PSEUDOCYST [None]
  - BILIARY DILATATION [None]
  - PANCREATIC DUCT DILATATION [None]
  - BENIGN PANCREATIC NEOPLASM [None]
